FAERS Safety Report 9156617 (Version 1)
Quarter: 2013Q1

REPORT INFORMATION
  Report Type: Spontaneous
  Country: US (occurrence: None)
  Receive Date: 20130307
  Receipt Date: 20130307
  Transmission Date: 20140127
  Serious: No
  Sender: FDA-Public Use
  Company Number: None

PATIENT
  Sex: Female

DRUGS (1)
  1. MAKENA [Suspect]
     Indication: THREATENED LABOUR
     Dosage: 1ML (250MG) EVERY WEEK INTRAMUSCULARTY
     Dates: start: 20130130

REACTIONS (1)
  - Fatigue [None]
